FAERS Safety Report 5801936-7 (Version None)
Quarter: 2008Q3

REPORT INFORMATION
  Report Type: 
  Country: None (occurrence: None)
  Receive Date: 20080702
  Receipt Date: 20080619
  Transmission Date: 20090109
  Serious: Yes (Hospitalization)
  Sender: FDA-Public Use
  Company Number: 8032584

PATIENT
  Age: 52 Year
  Sex: Male
  Weight: 77.3 kg

DRUGS (12)
  1. KEPPRA [Suspect]
     Indication: CONVULSION PROPHYLAXIS
     Dosage: 1500 MG 2/D
     Dates: start: 20080422
  2. TEMODAR [Suspect]
     Indication: GLIOBLASTOMA MULTIFORME
     Dosage: 145 MG /D PO
     Route: 048
     Dates: start: 20080317, end: 20080428
  3. DILANTIN [Suspect]
  4. ZETIA [Concomitant]
  5. COREG [Concomitant]
  6. PREVACID [Concomitant]
  7. SYNTHROID [Concomitant]
  8. PERCOCET [Concomitant]
  9. CLOTRIMAZOLE [Concomitant]
  10. ZOFRAN [Concomitant]
  11. ZOCOR [Concomitant]
  12. HYDROXYZINE [Concomitant]

REACTIONS (4)
  - DRUG ERUPTION [None]
  - DRUG HYPERSENSITIVITY [None]
  - RENAL INFARCT [None]
  - SPLENIC INFARCTION [None]
